FAERS Safety Report 24245825 (Version 2)
Quarter: 2025Q2

REPORT INFORMATION
  Report Type: Report from Study
  Country: US (occurrence: US)
  Receive Date: 20240824
  Receipt Date: 20250415
  Transmission Date: 20250717
  Serious: Yes (Other)
  Sender: NOVARTIS
  Company Number: US-002147023-NVSC2024US167251

PATIENT
  Sex: Female

DRUGS (1)
  1. LEQVIO [Suspect]
     Active Substance: INCLISIRAN SODIUM
     Indication: Product used for unknown indication
     Route: 058
     Dates: start: 20240811

REACTIONS (10)
  - Immunodeficiency [Unknown]
  - COVID-19 [Recovering/Resolving]
  - Antibody test abnormal [Unknown]
  - Lipids increased [Unknown]
  - High density lipoprotein increased [Unknown]
  - Low density lipoprotein increased [Unknown]
  - Injection site pain [Unknown]
  - Toothache [Unknown]
  - Vomiting [Unknown]
  - Swelling face [Unknown]
